FAERS Safety Report 5406165-7 (Version None)
Quarter: 2007Q3

REPORT INFORMATION
  Report Type: 
  Country: None (occurrence: None)
  Receive Date: 20070806
  Receipt Date: 20070725
  Transmission Date: 20080115
  Serious: Yes (Hospitalization, Other)
  Sender: FDA-Public Use
  Company Number: US-AMGEN-KDL232868

PATIENT
  Sex: Male
  Weight: 96.7 kg

DRUGS (40)
  1. PROCRIT [Suspect]
     Indication: DIALYSIS
     Route: 065
     Dates: end: 20070703
  2. ALKERAN [Concomitant]
  3. ADVAIR DISKUS 100/50 [Concomitant]
     Route: 055
     Dates: start: 20051011
  4. ANDROGEL [Concomitant]
     Dates: start: 20070703
  5. ASPIRIN [Concomitant]
     Dates: start: 20070619
  6. ATARAX [Concomitant]
     Dates: start: 20070619
  7. VITAMIN B-12 [Concomitant]
     Route: 051
     Dates: start: 20061122
  8. COLACE [Concomitant]
     Dates: start: 20051025
  9. COREG [Concomitant]
     Dates: start: 20070619
  10. DUONEB [Concomitant]
     Route: 055
     Dates: start: 20051129
  11. ELAVIL [Concomitant]
     Dates: start: 20060220
  12. IRON [Concomitant]
  13. FISH OIL [Concomitant]
     Dates: start: 20060111
  14. FOLIC ACID [Concomitant]
     Dates: start: 20061228
  15. GLIPIZIDE [Concomitant]
     Dates: start: 20051025
  16. HUMULIN N [Concomitant]
     Dates: start: 20051025
  17. HUMULIN 70/30 [Concomitant]
     Dates: start: 20051025
  18. ZOCOR [Concomitant]
     Dates: start: 20060726
  19. REQUIP [Concomitant]
     Dates: start: 20051025
  20. SYNTHROID [Concomitant]
     Dates: start: 20070619
  21. SPIRIVA [Concomitant]
     Route: 055
     Dates: start: 20060126
  22. TRICOR [Concomitant]
     Dates: start: 20051025
  23. PHENERGAN HCL [Concomitant]
     Dates: start: 20060620
  24. RENAGEL [Concomitant]
     Dates: start: 20051025
  25. DARVOCET [Concomitant]
  26. XANAX [Concomitant]
     Dates: start: 20051209
  27. KAYEXALATE [Concomitant]
     Dates: start: 20051025
  28. LEVSIN [Concomitant]
     Dates: start: 20051025
  29. MECLIZINE HCL [Concomitant]
     Dates: start: 20070221
  30. METHADONE HYDROCHLORIDE [Concomitant]
     Dates: start: 20061109
  31. MIDODRINE HYDROCHLORIDE [Concomitant]
     Dates: start: 20060803
  32. NEXIUM [Concomitant]
     Dates: start: 20051025
  33. NIASPAN [Concomitant]
     Dates: start: 20051025
  34. NYSTATIN [Concomitant]
     Route: 061
     Dates: start: 20070221
  35. PLAVIX [Concomitant]
     Dates: start: 20051025
  36. NITROGLYCERIN [Concomitant]
     Dates: start: 20051025
  37. FEXOFENADINE HCL [Concomitant]
     Dates: start: 20070330
  38. LEVSIN [Concomitant]
     Dates: start: 20061025
  39. MIRALAX [Concomitant]
     Dates: start: 20061025
  40. SODIUM BICARBONATE [Concomitant]
     Dates: start: 20051208

REACTIONS (4)
  - ABSCESS LIMB [None]
  - BONE MARROW FAILURE [None]
  - PLATELET COUNT DECREASED [None]
  - THERAPEUTIC RESPONSE DECREASED [None]
